FAERS Safety Report 6254906-1 (Version None)
Quarter: 2009Q3

REPORT INFORMATION
  Report Type: 
  Country: None (occurrence: None)
  Receive Date: 20090702
  Receipt Date: 20090629
  Transmission Date: 20100115
  Serious: Yes (Hospitalization)
  Sender: FDA-Public Use
  Company Number: FR-BRISTOL-MYERS SQUIBB COMPANY-14684393

PATIENT
  Age: 45 Year
  Sex: Male

DRUGS (8)
  1. COAPROVEL FILM-COATED TABS [Suspect]
     Dosage: 1 DOSAGE FORM = 300 MG/25 MG
     Route: 048
     Dates: start: 20081219, end: 20090122
  2. ALLOPURINOL [Suspect]
     Route: 048
     Dates: start: 20081219, end: 20090112
  3. SIMVASTATIN [Concomitant]
  4. LIORESAL [Concomitant]
  5. AMLODIPINE [Concomitant]
  6. COUMADIN [Concomitant]
  7. DEROXAT [Concomitant]
  8. TEMESTA [Concomitant]

REACTIONS (1)
  - DRUG RASH WITH EOSINOPHILIA AND SYSTEMIC SYMPTOMS [None]
